FAERS Safety Report 7379049-5 (Version None)
Quarter: 2011Q1

REPORT INFORMATION
  Report Type: 
  Country: None (occurrence: None)
  Receive Date: 20110328
  Receipt Date: 20110318
  Transmission Date: 20110831
  Serious: Yes (Hospitalization)
  Sender: FDA-Public Use
  Company Number: JP-MEDIMMUNE-MEDI-0012976

PATIENT
  Sex: Female

DRUGS (1)
  1. SYNAGIS [Suspect]
     Route: 030
     Dates: start: 20110314, end: 20110314

REACTIONS (2)
  - FEEDING DISORDER NEONATAL [None]
  - CYTOGENETIC ABNORMALITY [None]
